FAERS Safety Report 7338679-7 (Version None)
Quarter: 2011Q1

REPORT INFORMATION
  Report Type: 
  Country: None (occurrence: None)
  Receive Date: 20110308
  Receipt Date: 20110228
  Transmission Date: 20110831
  Serious: Yes (Hospitalization)
  Sender: FDA-Public Use
  Company Number: A0892635A

PATIENT
  Age: 81 Year
  Sex: Male
  Weight: 88.6 kg

DRUGS (6)
  1. PLAVIX [Concomitant]
  2. HYDROCHLOROTHIAZIDE [Concomitant]
  3. VYTORIN [Concomitant]
  4. AVANDIA [Suspect]
     Indication: DIABETES MELLITUS
     Dosage: 4MG PER DAY
     Route: 048
     Dates: start: 20040527, end: 20061003
  5. METFORMIN HCL [Concomitant]
  6. PREVACID [Concomitant]

REACTIONS (5)
  - ATRIAL FLUTTER [None]
  - MYOCARDIAL INFARCTION [None]
  - CARDIAC FAILURE CONGESTIVE [None]
  - CEREBROVASCULAR ACCIDENT [None]
  - SICK SINUS SYNDROME [None]
